FAERS Safety Report 11054559 (Version 1)
Quarter: 2015Q2

REPORT INFORMATION
  Report Type: Spontaneous
  Country: US (occurrence: US)
  Receive Date: 20150422
  Receipt Date: 20150422
  Transmission Date: 20150821
  Serious: No
  Sender: FDA-Public Use
  Company Number: US-BRISTOL-MYERS SQUIBB COMPANY-BMS-2015-024521

PATIENT
  Sex: Male
  Weight: 89 kg

DRUGS (1)
  1. ELIQUIS [Suspect]
     Active Substance: APIXABAN
     Indication: PRODUCT USED FOR UNKNOWN INDICATION
     Dosage: 2.5 MG, UNK (5MG TABLET HE SPLITTED TO HALF)
     Route: 065

REACTIONS (2)
  - Rash [Unknown]
  - Wrong technique in drug usage process [Unknown]
